FAERS Safety Report 19151133 (Version 1)
Quarter: 2021Q2

REPORT INFORMATION
  Report Type: Spontaneous
  Country: IN (occurrence: IN)
  Receive Date: 20210419
  Receipt Date: 20210419
  Transmission Date: 20210717
  Serious: Yes (Other)
  Sender: FDA-Public Use
  Company Number: IN-LUPIN LIMITED-2021-04858

PATIENT
  Age: 61 Year
  Sex: Male
  Weight: 72 kg

DRUGS (1)
  1. TELISTA AM [Suspect]
     Active Substance: AMLODIPINE\TELMISARTAN
     Indication: BLOOD PRESSURE ABNORMAL
     Dosage: UNK UNK, BID
     Route: 065
     Dates: start: 2020

REACTIONS (2)
  - Dizziness [Unknown]
  - Blood pressure decreased [Unknown]

NARRATIVE: CASE EVENT DATE: 202102
